FAERS Safety Report 10092042 (Version 2)
Quarter: 2014Q2

REPORT INFORMATION
  Report Type: Spontaneous
  Country: US (occurrence: US)
  Receive Date: 20140421
  Receipt Date: 20140421
  Transmission Date: 20141212
  Serious: No
  Sender: FDA-Public Use
  Company Number: US-GILEAD-2013-0070948

PATIENT
  Sex: Female

DRUGS (8)
  1. LETAIRIS [Suspect]
     Indication: PULMONARY HYPERTENSION
     Dosage: 5 MG, QD
     Route: 048
     Dates: start: 20120629, end: 20130128
  2. DIGOXIN [Concomitant]
  3. SIMVASTATIN [Concomitant]
  4. AMLODIPINE [Concomitant]
  5. WARFARIN [Concomitant]
  6. METOPROLOL [Concomitant]
  7. DIPHENOXYLATE/ATROPINE [Concomitant]
  8. EDARBYCLOR [Concomitant]

REACTIONS (1)
  - Oedema [Recovered/Resolved]
